FAERS Safety Report 4478645-2 (Version None)
Quarter: 2004Q4

REPORT INFORMATION
  Report Type: 
  Country: None (occurrence: None)
  Receive Date: 20041014
  Receipt Date: 20041007
  Transmission Date: 20050328
  Serious: No
  Sender: FDA-Public Use
  Company Number: 2004UW18402

PATIENT

DRUGS (1)
  1. IRESSA [Suspect]

REACTIONS (1)
  - DIABETIC KETOACIDOSIS [None]
